FAERS Safety Report 8538038-5 (Version None)
Quarter: 2012Q3

REPORT INFORMATION
  Report Type: 
  Country: None (occurrence: None)
  Receive Date: 20120725
  Receipt Date: 20120720
  Transmission Date: 20120928
  Serious: No
  Sender: FDA-Public Use
  Company Number: US-PFIZER INC-2012138547

PATIENT
  Sex: Male
  Weight: 103 kg

DRUGS (3)
  1. NEURONTIN [Suspect]
     Dosage: 300 MG, 3X/DAY
     Dates: end: 20120605
  2. GABAPENTIN [Suspect]
     Dosage: UNK
  3. NEURONTIN [Suspect]
     Indication: NEUROPATHY PERIPHERAL
     Dosage: 100 MG, 3X/DAY
     Dates: start: 20100101

REACTIONS (7)
  - SEDATION [None]
  - WEIGHT INCREASED [None]
  - DRUG INEFFECTIVE [None]
  - NEURALGIA [None]
  - PAIN [None]
  - MUSCULAR WEAKNESS [None]
  - ACCIDENT [None]
